FAERS Safety Report 14580371 (Version 1)
Quarter: 2018Q1

REPORT INFORMATION
  Report Type: Spontaneous
  Country: FR (occurrence: FR)
  Receive Date: 20180228
  Receipt Date: 20180228
  Transmission Date: 20180509
  Serious: Yes (Other)
  Sender: FDA-Public Use
  Company Number: FR-MERCK KGAA-2042689

PATIENT
  Age: 62 Year
  Sex: Female
  Weight: 61 kg

DRUGS (5)
  1. L THYROXIN HENNING [Concomitant]
     Active Substance: LEVOTHYROXINE SODIUM
     Route: 048
     Dates: start: 20171201
  2. NOVOTHYROX [Suspect]
     Active Substance: LEVOTHYROXINE SODIUM
     Indication: AUTOIMMUNE THYROIDITIS
     Route: 048
     Dates: start: 20170516, end: 20171130
  3. COAPROVEL(KARVEA HCT) [Concomitant]
     Route: 048
     Dates: start: 20100101
  4. DUOPLAVIN (NEFAZAN COMPUESTO) [Concomitant]
     Route: 048
     Dates: start: 201707
  5. LEVOTHYROX 25 [Suspect]
     Active Substance: LEVOTHYROXINE SODIUM
     Route: 048
     Dates: start: 201710, end: 20171130

REACTIONS (10)
  - Palpitations [Not Recovered/Not Resolved]
  - Blood thyroid stimulating hormone normal [Recovered/Resolved]
  - Somnolence [Not Recovered/Not Resolved]
  - Abdominal distension [Not Recovered/Not Resolved]
  - Abdominal pain [Not Recovered/Not Resolved]
  - Weight increased [Not Recovered/Not Resolved]
  - Tremor [Not Recovered/Not Resolved]
  - Asthenia [Not Recovered/Not Resolved]
  - Feeling cold [Not Recovered/Not Resolved]
  - Alopecia [Not Recovered/Not Resolved]

NARRATIVE: CASE EVENT DATE: 20170727
